FAERS Safety Report 9417820 (Version 4)
Quarter: 2013Q3

REPORT INFORMATION
  Report Type: Report from Study
  Country: IE (occurrence: IE)
  Receive Date: 20130724
  Receipt Date: 20130826
  Transmission Date: 20140515
  Serious: Yes (Hospitalization)
  Sender: FDA-Public Use
  Company Number: IE-GLAXOSMITHKLINE-Z0020384A

PATIENT
  Age: 54 Year
  Sex: Male
  Weight: 98.8 kg

DRUGS (2)
  1. DABRAFENIB [Suspect]
     Indication: MALIGNANT MELANOMA
     Dosage: 150MG TWICE PER DAY
     Route: 048
     Dates: start: 20130405
  2. TRAMETINIB [Suspect]
     Indication: MALIGNANT MELANOMA
     Dosage: 2MG PER DAY
     Route: 048
     Dates: start: 20130405

REACTIONS (1)
  - Urinary tract infection [Recovering/Resolving]
